FAERS Safety Report 23418142 (Version 1)
Quarter: 2024Q1

REPORT INFORMATION
  Report Type: Spontaneous
  Country: US (occurrence: US)
  Receive Date: 20240118
  Receipt Date: 20240118
  Transmission Date: 20240410
  Serious: No
  Sender: FDA-Public Use
  Company Number: US-PFIZER INC-PV202400006112

PATIENT
  Age: 75 Year
  Sex: Female

DRUGS (1)
  1. ESTRADIOL CYPIONATE [Suspect]
     Active Substance: ESTRADIOL CYPIONATE
     Dosage: UNK

REACTIONS (1)
  - Hypertension [Unknown]
